FAERS Safety Report 7954596-3 (Version None)
Quarter: 2011Q4

REPORT INFORMATION
  Report Type: 
  Country: None (occurrence: None)
  Receive Date: 20111202
  Receipt Date: 20111124
  Transmission Date: 20120403
  Serious: Yes (Hospitalization)
  Sender: FDA-Public Use
  Company Number: PHHY2011JP103876

PATIENT
  Age: 4 Year
  Sex: Female

DRUGS (1)
  1. PAMIDRONATE DISODIUM [Suspect]
     Dosage: UNK UKN, UNK

REACTIONS (1)
  - EPIPHYSEAL INJURY [None]
